FAERS Safety Report 18158900 (Version 1)
Quarter: 2020Q3

REPORT INFORMATION
  Report Type: Spontaneous
  Country: US (occurrence: US)
  Receive Date: 20200818
  Receipt Date: 20200818
  Transmission Date: 20201103
  Serious: Yes (Other)
  Sender: FDA-Public Use
  Company Number: US-GLAND PHARMA LIMITED-2088718

PATIENT
  Age: 26 Year
  Sex: Female

DRUGS (5)
  1. DOXORUBICIN HYDROCHLORIDE. [Suspect]
     Active Substance: DOXORUBICIN HYDROCHLORIDE
     Indication: OSTEOSARCOMA METASTATIC
  2. RIBOCICLIB. [Concomitant]
     Active Substance: RIBOCICLIB
  3. CISPLATIN. [Suspect]
     Active Substance: CISPLATIN
  4. METHOTREXATE. [Suspect]
     Active Substance: METHOTREXATE
  5. GEMCITABINE. [Suspect]
     Active Substance: GEMCITABINE

REACTIONS (4)
  - Neutropenia [Unknown]
  - Nausea [Unknown]
  - Oedema peripheral [Unknown]
  - Thrombocytopenia [Unknown]
